FAERS Safety Report 8928749 (Version 1)
Quarter: 2012Q4

REPORT INFORMATION
  Report Type: 
  Country: US (occurrence: US)
  Receive Date: 20121128
  Receipt Date: 20121128
  Transmission Date: 20130627
  Serious: No
  Sender: FDA-Public Use
  Company Number: US-PFIZER INC-2012296837

PATIENT
  Age: 73 Year
  Sex: Female
  Weight: 58.05 kg

DRUGS (4)
  1. ATORVASTATIN CALCIUM [Suspect]
     Indication: HIGH CHOLESTEROL
     Dosage: 80 mg, 1x/day
     Route: 048
     Dates: start: 20120312, end: 20121123
  2. WELCHOL [Concomitant]
     Dosage: three 625 mg tablets two times a day
  3. ZETIA [Concomitant]
     Dosage: UNK
  4. METOPROLOL [Concomitant]
     Dosage: UNK, 2x/day

REACTIONS (1)
  - Pain in extremity [Not Recovered/Not Resolved]
